FAERS Safety Report 17055259 (Version 4)
Quarter: 2020Q1

REPORT INFORMATION
  Report Type: Report from Study
  Country: US (occurrence: US)
  Receive Date: 20191120
  Receipt Date: 20200224
  Transmission Date: 20200409
  Serious: Yes (Hospitalization)
  Sender: FDA-Public Use
  Company Number: US-ACTELION-A-NJ2019-197470

PATIENT
  Age: 64 Year
  Sex: Female
  Weight: 96.15 kg

DRUGS (14)
  1. DECARA [Concomitant]
     Dosage: 50000 IU, Q1WEEK
     Dates: start: 201812
  2. HYDROXYZINE [Concomitant]
     Active Substance: HYDROXYZINE HYDROCHLORIDE
     Dosage: 25 MG, TID PRN
     Dates: start: 2006
  3. MAGNESIUM COMPLEX [Concomitant]
     Dosage: 400 MG, QD
     Dates: start: 201906
  4. SILDENAFIL. [Concomitant]
     Active Substance: SILDENAFIL
     Dosage: 25 MG, TID
     Dates: start: 201907, end: 201910
  5. ELIQUIS [Concomitant]
     Active Substance: APIXABAN
     Dosage: 5 MG, BID
     Dates: start: 201907
  6. POTASSIUM [Concomitant]
     Active Substance: POTASSIUM
     Dosage: 20 MG, QD
     Dates: start: 201907
  7. BIOTIN [Concomitant]
     Active Substance: BIOTIN
     Dosage: 5000 MG, QD
     Dates: start: 2018
  8. PILOCARPINE. [Concomitant]
     Active Substance: PILOCARPINE
     Dosage: 5 MG, TID
     Dates: start: 2017
  9. OMEPRAZOLE. [Concomitant]
     Active Substance: OMEPRAZOLE
     Dosage: 40 MG, QD
     Dates: start: 201802
  10. PREDNISONE. [Concomitant]
     Active Substance: PREDNISONE
     Dosage: 10 MG, QD
     Dates: start: 201906
  11. GRAPE SEED [Concomitant]
     Active Substance: HERBALS\VITIS VINIFERA SEED
     Dosage: 325 MG, QD
     Dates: start: 2018
  12. OPSUMIT [Suspect]
     Active Substance: MACITENTAN
     Indication: CHRONIC OBSTRUCTIVE PULMONARY DISEASE
     Dosage: 10 MG, QD
     Route: 048
     Dates: start: 20191008
  13. LETAIRIS [Suspect]
     Active Substance: AMBRISENTAN
     Indication: PRODUCT USED FOR UNKNOWN INDICATION
     Route: 065
  14. FUROSEMIDE. [Concomitant]
     Active Substance: FUROSEMIDE
     Dosage: 40 MG, QD
     Dates: start: 201907

REACTIONS (18)
  - Pain in extremity [Unknown]
  - Hospitalisation [Unknown]
  - Nasal inflammation [Unknown]
  - Chromaturia [Recovered/Resolved]
  - Fatigue [Unknown]
  - Disturbance in attention [Unknown]
  - Muscle spasms [Unknown]
  - Sluggishness [Unknown]
  - Vulvovaginal burning sensation [Recovered/Resolved]
  - Chest pain [Unknown]
  - Anxiety [Unknown]
  - Anaemia [Unknown]
  - Weight increased [Unknown]
  - Asthenia [Unknown]
  - Nasal congestion [Unknown]
  - Urinary tract infection [Recovered/Resolved]
  - Sinus disorder [Unknown]
  - Therapy non-responder [Unknown]

NARRATIVE: CASE EVENT DATE: 20191010
